FAERS Safety Report 7535550-2 (Version None)
Quarter: 2011Q2

REPORT INFORMATION
  Report Type: 
  Country: None (occurrence: None)
  Receive Date: 20110609
  Receipt Date: 20110602
  Transmission Date: 20111010
  Serious: Yes (Other)
  Sender: FDA-Public Use
  Company Number: US-JNJFOC-20110602496

PATIENT
  Sex: Female
  Weight: 70.76 kg

DRUGS (5)
  1. NEURONTIN [Concomitant]
     Indication: HEADACHE
     Route: 048
  2. TOPIRAMATE [Suspect]
     Indication: MIGRAINE PROPHYLAXIS
     Route: 048
  3. VERAPAMIL [Concomitant]
     Indication: HEADACHE
     Route: 048
     Dates: start: 20090101
  4. INDOMETHACIN [Concomitant]
     Indication: INFLAMMATION
     Route: 065
     Dates: start: 20090101
  5. TOPAMAX [Suspect]
     Indication: MIGRAINE PROPHYLAXIS
     Route: 048
     Dates: start: 20091201

REACTIONS (2)
  - HYPERTHYROIDISM [None]
  - WEIGHT DECREASED [None]
